FAERS Safety Report 8817755 (Version 2)
Quarter: 2012Q4

REPORT INFORMATION
  Report Type: 
  Country: NO (occurrence: NO)
  Receive Date: 20121001
  Receipt Date: 20121004
  Transmission Date: 20130627
  Serious: Yes (Other)
  Sender: FDA-Public Use
  Company Number: NO-PFIZER INC-2012238611

PATIENT
  Age: 7 Year
  Sex: Male

DRUGS (1)
  1. AMLODIPINE BESILATE [Suspect]
     Indication: ESSENTIAL HYPERTENSION
     Dosage: 8.75 mg, 1x/day
     Route: 048
     Dates: start: 20110505, end: 20120912

REACTIONS (1)
  - Blood glucose increased [Not Recovered/Not Resolved]
